FAERS Safety Report 7051267-5 (Version None)
Quarter: 2010Q4

REPORT INFORMATION
  Report Type: 
  Country: None (occurrence: None)
  Receive Date: 20101019
  Receipt Date: 20101014
  Transmission Date: 20110411
  Serious: Yes (Life-Threatening, Hospitalization)
  Sender: FDA-Public Use
  Company Number: CL-BRISTOL-MYERS SQUIBB COMPANY-15318223

PATIENT
  Age: 67 Year
  Sex: Female
  Weight: 72 kg

DRUGS (3)
  1. CETUXIMAB [Suspect]
     Indication: GASTROOESOPHAGEAL CANCER
     Dosage: STRENGTH:5MG/ML RECENT INF:24SEP10 NO OF INF:11
     Route: 042
     Dates: start: 20100709
  2. CISPLATIN [Suspect]
     Indication: GASTROOESOPHAGEAL CANCER
     Dosage: ON DAY 1 OF CYCLE RECENT INF:24SEP10
     Route: 042
     Dates: start: 20100709, end: 20100924
  3. XELODA [Suspect]
     Indication: GASTROOESOPHAGEAL CANCER
     Dosage: ON DAY 1 TO15 FOR:TABLET
     Route: 048
     Dates: start: 20100709, end: 20100929

REACTIONS (1)
  - MYOCARDIAL ISCHAEMIA [None]
